FAERS Safety Report 16325464 (Version 1)
Quarter: 2019Q2

REPORT INFORMATION
  Report Type: Spontaneous
  Country: US (occurrence: US)
  Receive Date: 20190514
  Receipt Date: 20190514
  Transmission Date: 20190711
  Serious: Yes (Hospitalization, Other)
  Sender: FDA-Public Use
  Company Number: None

PATIENT
  Age: 9 Year
  Sex: Male

DRUGS (5)
  1. BIOTIN [Suspect]
     Active Substance: BIOTIN
     Indication: AUTISM SPECTRUM DISORDER
     Route: 048
  2. ATHEROLYZIN [Suspect]
     Active Substance: HERBALS
     Indication: AUTISM SPECTRUM DISORDER
     Route: 048
  3. ATHEROLYZIN [Concomitant]
     Dates: end: 20180630
  4. BIOTIN [Concomitant]
     Active Substance: BIOTIN
     Dates: end: 20180630
  5. SYNGEN [Concomitant]
     Dates: end: 20180630

REACTIONS (2)
  - Product contamination physical [None]
  - Metal poisoning [None]

NARRATIVE: CASE EVENT DATE: 20180906
